FAERS Safety Report 6448587-1 (Version None)
Quarter: 2009Q4

REPORT INFORMATION
  Report Type: 
  Country: None (occurrence: None)
  Receive Date: 20091120
  Receipt Date: 20091110
  Transmission Date: 20100525
  Serious: Yes (Hospitalization, Other)
  Sender: FDA-Public Use
  Company Number: US-AMGEN-QUU373993

PATIENT
  Sex: Female

DRUGS (2)
  1. ENBREL [Suspect]
     Indication: RHEUMATOID ARTHRITIS
     Route: 058
     Dates: start: 19980101
  2. METHOTREXATE [Concomitant]
     Route: 048

REACTIONS (5)
  - CONTUSION [None]
  - FOOT DEFORMITY [None]
  - LIMB INJURY [None]
  - LOCALISED INFECTION [None]
  - RHEUMATOID ARTHRITIS [None]
